FAERS Safety Report 10630000 (Version 2)
Quarter: 2014Q4

REPORT INFORMATION
  Report Type: Spontaneous
  Country: US (occurrence: US)
  Receive Date: 20141205
  Receipt Date: 20141205
  Transmission Date: 20150529
  Serious: No
  Sender: FDA-Public Use
  Company Number: US-BRISTOL-MYERS SQUIBB COMPANY-21214242

PATIENT
  Sex: Female

DRUGS (1)
  1. SPRYCEL [Suspect]
     Active Substance: DASATINIB
     Indication: CHRONIC MYELOID LEUKAEMIA
     Dates: start: 201303

REACTIONS (5)
  - Cytomegalovirus infection [Unknown]
  - Serum ferritin decreased [Unknown]
  - Epstein-Barr virus infection [Unknown]
  - Anaemia [Recovered/Resolved]
  - Fatigue [Unknown]
